FAERS Safety Report 6524467-8 (Version None)
Quarter: 2009Q4

REPORT INFORMATION
  Report Type: 
  Country: None (occurrence: None)
  Receive Date: 20091224
  Receipt Date: 20091210
  Transmission Date: 20100525
  Serious: Yes (Hospitalization)
  Sender: FDA-Public Use
  Company Number: 2009AL007846

PATIENT
  Age: 74 Year
  Sex: Female

DRUGS (7)
  1. AMLODIPINE BESYLATE [Suspect]
     Indication: HYPERTENSION
     Dosage: 5 MG;QD
     Dates: start: 20091026
  2. COAPROVEL [Concomitant]
  3. ASCAL CARDIO [Concomitant]
  4. PRAVASTSTINENATRIUM [Concomitant]
  5. PERSANTINE [Concomitant]
  6. PAROXETINE HCL [Concomitant]
  7. METOPROLOLSUCCINAT [Concomitant]

REACTIONS (1)
  - CIRCULATORY COLLAPSE [None]
